FAERS Safety Report 7564381-2 (Version None)
Quarter: 2011Q2

REPORT INFORMATION
  Report Type: 
  Country: None (occurrence: None)
  Receive Date: 20110622
  Receipt Date: 20110609
  Transmission Date: 20111010
  Serious: Yes (Other)
  Sender: FDA-Public Use
  Company Number: PHHY2011US39021

PATIENT
  Age: 76 Year
  Sex: Female

DRUGS (8)
  1. MULTI-VITAMIN [Concomitant]
  2. CITRACAL [Concomitant]
  3. DIOVAN [Suspect]
     Dosage: 160 MG, BID
     Dates: start: 19800101
  4. VITAMIN B COMPLEX CAP [Concomitant]
  5. VITAMIN D [Concomitant]
  6. MAGNESIUM [Concomitant]
  7. TYLENOL-500 [Suspect]
     Dosage: UNK, TWO PILLS OCCASION
  8. CALCIUM CARBONATE [Concomitant]

REACTIONS (4)
  - HYPOAESTHESIA [None]
  - GASTROINTESTINAL DISORDER [None]
  - HEADACHE [None]
  - COELIAC DISEASE [None]
